FAERS Safety Report 15413444 (Version 1)
Quarter: 2018Q3

REPORT INFORMATION
  Report Type: Spontaneous
  Country: US (occurrence: US)
  Receive Date: 20180921
  Receipt Date: 20180921
  Transmission Date: 20181010
  Serious: Yes (Hospitalization)
  Sender: FDA-Public Use
  Company Number: US-FRESENIUS KABI-FK201809841

PATIENT
  Age: 55 Year
  Sex: Male

DRUGS (3)
  1. CARFILZOMIB [Suspect]
     Active Substance: CARFILZOMIB
     Indication: CHEMOTHERAPY
     Route: 065
  2. DEXAMETHASONE INJECTION (MANUFACTURER UNKNOWN) [Suspect]
     Active Substance: DEXAMETHASONE
     Indication: CHEMOTHERAPY
     Route: 065
  3. POMALIDOMIDE [Suspect]
     Active Substance: POMALIDOMIDE
     Indication: CHEMOTHERAPY
     Route: 065

REACTIONS (6)
  - Burkholderia cepacia complex sepsis [Recovered/Resolved]
  - Device related sepsis [Recovered/Resolved]
  - Deep vein thrombosis [Unknown]
  - Device related thrombosis [Unknown]
  - Pneumonia [Unknown]
  - Meningitis bacterial [Recovered/Resolved]
